FAERS Safety Report 7944963-6 (Version None)
Quarter: 2011Q4

REPORT INFORMATION
  Report Type: 
  Country: None (occurrence: None)
  Receive Date: 20111114
  Receipt Date: 20111003
  Transmission Date: 20120403
  Serious: No
  Sender: FDA-Public Use
  Company Number: 1000024384

PATIENT
  Age: 51 Year
  Sex: Female

DRUGS (8)
  1. SYNTHROID (LEVOTHYROXINE SODIUM) (LEVOTHYROXINE SODIUM) [Concomitant]
  2. HYDROCHLOROTHIAZIDE [Concomitant]
  3. SAVELLA [Suspect]
     Indication: FIBROMYALGIA
     Dosage: 12.5 MG (12.5 MG, 1 IN 1 D), ORAL, 25 MG (12.5 MG, 2 IN 1 D), ORAL
     Route: 048
     Dates: start: 20110914, end: 20110914
  4. SAVELLA [Suspect]
     Indication: FIBROMYALGIA
     Dosage: 12.5 MG (12.5 MG, 1 IN 1 D), ORAL, 25 MG (12.5 MG, 2 IN 1 D), ORAL
     Route: 048
     Dates: start: 20110915, end: 20110915
  5. AMBIEN [Concomitant]
  6. SAVELLA [Suspect]
     Indication: FIBROMYALGIA
     Dosage: 50 MG (25 MG, 2 IN 1 D), ORAL, 25 MG IN AM AND 12.5 MG IN PM, ORAL
     Route: 048
     Dates: start: 20110916, end: 20110916
  7. SAVELLA [Suspect]
     Indication: FIBROMYALGIA
     Dosage: 50 MG (25 MG, 2 IN 1 D), ORAL, 25 MG IN AM AND 12.5 MG IN PM, ORAL
     Route: 048
     Dates: start: 20110917, end: 20110917
  8. LISINOPRIL [Concomitant]

REACTIONS (9)
  - MEMORY IMPAIRMENT [None]
  - INSOMNIA [None]
  - TINNITUS [None]
  - PERIPHERAL COLDNESS [None]
  - PARAESTHESIA [None]
  - DIZZINESS [None]
  - HEADACHE [None]
  - TREMOR [None]
  - HYPERHIDROSIS [None]
